FAERS Safety Report 22618324 (Version 1)
Quarter: 2023Q2

REPORT INFORMATION
  Report Type: Spontaneous
  Country: DE (occurrence: DE)
  Receive Date: 20230620
  Receipt Date: 20230620
  Transmission Date: 20230721
  Serious: No
  Sender: FDA-Public Use
  Company Number: DE-PFM-2022-07851

PATIENT
  Age: 5 Week
  Sex: Male

DRUGS (9)
  1. PROPRANOLOL [Suspect]
     Active Substance: PROPRANOLOL HYDROCHLORIDE
     Indication: Haemangioma
     Dosage: 2.5 MG/KG/DAY
     Route: 048
  2. PROPRANOLOL [Suspect]
     Active Substance: PROPRANOLOL HYDROCHLORIDE
     Indication: Haemangioma of liver
     Dosage: 5 MG PER KG PER DAY
     Route: 048
  3. PROPRANOLOL [Suspect]
     Active Substance: PROPRANOLOL HYDROCHLORIDE
     Indication: Off label use
  4. SIROLIMUS [Suspect]
     Active Substance: SIROLIMUS
     Indication: Haemangioma of liver
     Dosage: 0.8 MG/M2 BSA TWICE DAILY (TARGET LEVEL 10-15 NG/ML)
     Route: 065
  5. SIROLIMUS [Suspect]
     Active Substance: SIROLIMUS
     Indication: Haemangioma
     Dosage: REDUCED TO A SERUM LEVEL OF 4 NG/ML
     Route: 065
  6. LEVOTHYROXINE [Concomitant]
     Active Substance: LEVOTHYROXINE
     Indication: Hypothyroidism
     Dosage: 50 ?G/DAY
     Route: 048
  7. LEVOTHYROXINE [Concomitant]
     Active Substance: LEVOTHYROXINE
     Dosage: 125 ?G/DAY
     Route: 048
  8. LIOTHYRONINE [Concomitant]
     Active Substance: LIOTHYRONINE
     Indication: Hypothyroidism
     Dosage: 10 ?G, THRICE DAILY
     Route: 048
  9. METHYLPREDNISOLONE [Concomitant]
     Active Substance: METHYLPREDNISOLONE
     Indication: Haemangioma of liver
     Dosage: UNK
     Route: 065

REACTIONS (5)
  - Gastritis [Unknown]
  - Aphthous ulcer [Unknown]
  - Overdose [Unknown]
  - Drug ineffective for unapproved indication [Unknown]
  - Off label use [Unknown]
